FAERS Safety Report 7631789-6 (Version None)
Quarter: 2011Q3

REPORT INFORMATION
  Report Type: 
  Country: None (occurrence: None)
  Receive Date: 20110725
  Receipt Date: 20110321
  Transmission Date: 20111222
  Serious: No
  Sender: FDA-Public Use
  Company Number: US-BRISTOL-MYERS SQUIBB COMPANY-15623754

PATIENT
  Sex: Male

DRUGS (2)
  1. ANDRODERM [Suspect]
  2. COUMADIN [Suspect]
     Indication: DEEP VEIN THROMBOSIS

REACTIONS (1)
  - INTERNATIONAL NORMALISED RATIO ABNORMAL [None]
